FAERS Safety Report 8784000 (Version 2)
Quarter: 2013Q4

REPORT INFORMATION
  Report Type: Spontaneous
  Country: JP (occurrence: JP)
  Receive Date: 20120913
  Receipt Date: 20131031
  Transmission Date: 20140711
  Serious: Yes (Other)
  Sender: FDA-Public Use
  Company Number: JP-MERCK-1209JPN004406

PATIENT
  Sex: 0

DRUGS (1)
  1. GASTER [Suspect]
     Route: 048

REACTIONS (1)
  - Tubulointerstitial nephritis [Unknown]
